FAERS Safety Report 7764065-1 (Version None)
Quarter: 2011Q3

REPORT INFORMATION
  Report Type: 
  Country: None (occurrence: None)
  Receive Date: 20110921
  Receipt Date: 20110919
  Transmission Date: 20111222
  Serious: Yes (Hospitalization, Other)
  Sender: FDA-Public Use
  Company Number: FR-JNJFOC-20110902676

PATIENT
  Age: 10 Year
  Sex: Male
  Weight: 35 kg

DRUGS (1)
  1. TOPIRAMATE [Suspect]
     Indication: ACCIDENTAL EXPOSURE
     Route: 048

REACTIONS (9)
  - HYPOTONIA [None]
  - LOGORRHOEA [None]
  - SOMNOLENCE [None]
  - AGITATION [None]
  - TOXIC ENCEPHALOPATHY [None]
  - CONFUSIONAL STATE [None]
  - ACIDOSIS HYPERCHLORAEMIC [None]
  - POISONING DELIBERATE [None]
  - HALLUCINATION, VISUAL [None]
